FAERS Safety Report 9031747 (Version 1)
Quarter: 2013Q1

REPORT INFORMATION
  Report Type: Spontaneous
  Country: US (occurrence: US)
  Receive Date: 20130124
  Receipt Date: 20130124
  Transmission Date: 20140127
  Serious: Yes (Hospitalization)
  Sender: FDA-Public Use
  Company Number: US-BAYER-2013-006826

PATIENT
  Age: 19 Year
  Sex: Female
  Weight: 61.22 kg

DRUGS (2)
  1. YAZ [Suspect]
     Dosage: UNK
  2. ORTHO TRI CYCLEN [Concomitant]
     Dosage: UNK

REACTIONS (3)
  - Deep vein thrombosis [Recovered/Resolved]
  - Pelvic venous thrombosis [Recovered/Resolved]
  - Vena cava thrombosis [None]
